FAERS Safety Report 24979560 (Version 3)
Quarter: 2025Q2

REPORT INFORMATION
  Report Type: Spontaneous
  Country: FR (occurrence: FR)
  Receive Date: 20250218
  Receipt Date: 20250605
  Transmission Date: 20250716
  Serious: Yes (Other)
  Sender: ABBVIE
  Company Number: FR-ABBVIE-6135340

PATIENT
  Age: 70 Year
  Sex: Female
  Weight: 55 kg

DRUGS (2)
  1. RINVOQ [Suspect]
     Active Substance: UPADACITINIB
     Indication: Rheumatoid arthritis
     Route: 048
     Dates: start: 20210901, end: 20250325
  2. PREDNISONE [Concomitant]
     Active Substance: PREDNISONE
     Indication: Product used for unknown indication
     Route: 048

REACTIONS (5)
  - Pulmonary mass [Unknown]
  - Nodule [Unknown]
  - Hypermetabolism [Unknown]
  - Squamous cell carcinoma [Unknown]
  - Pulmonary mass [Recovered/Resolved]

NARRATIVE: CASE EVENT DATE: 20240102
